FAERS Safety Report 22131839 (Version 1)
Quarter: 2023Q1

REPORT INFORMATION
  Report Type: Spontaneous
  Country: AU (occurrence: None)
  Receive Date: 20230323
  Receipt Date: 20230323
  Transmission Date: 20230417
  Serious: Yes (Other)
  Sender: FDA-Public Use
  Company Number: 2023A062662

PATIENT

DRUGS (3)
  1. FULVESTRANT [Suspect]
     Active Substance: FULVESTRANT
     Route: 030
  2. RIBOCICLIB [Suspect]
     Active Substance: RIBOCICLIB
     Route: 048
  3. XGEVA [Suspect]
     Active Substance: DENOSUMAB

REACTIONS (3)
  - Metastases to bone [Unknown]
  - Blood creatinine increased [Unknown]
  - Carbohydrate antigen 15-3 increased [Unknown]
